FAERS Safety Report 21782793 (Version 1)
Quarter: 2022Q4

REPORT INFORMATION
  Report Type: Spontaneous
  Country: US (occurrence: None)
  Receive Date: 20221225
  Receipt Date: 20221225
  Transmission Date: 20230113
  Serious: Yes (Other)
  Sender: FDA-Public Use
  Company Number: None

PATIENT
  Age: 32 Year
  Sex: Female
  Weight: 63.45 kg

DRUGS (2)
  1. CIPROFLOXACIN [Suspect]
     Active Substance: CIPROFLOXACIN
     Indication: Urinary tract infection
     Dosage: OTHER QUANTITY : 1 TABLET(S);?FREQUENCY : TWICE A DAY;?
     Route: 048
     Dates: start: 20221212, end: 20221212
  2. LAMICTAL [Concomitant]
     Active Substance: LAMOTRIGINE

REACTIONS (7)
  - Tremor [None]
  - Asthenia [None]
  - Mental disorder [None]
  - Mania [None]
  - Suicidal ideation [None]
  - Hallucinations, mixed [None]
  - Palpitations [None]

NARRATIVE: CASE EVENT DATE: 20221222
